FAERS Safety Report 5650375-0 (Version None)
Quarter: 2008Q1

REPORT INFORMATION
  Report Type: 
  Country: None (occurrence: None)
  Receive Date: 20080305
  Receipt Date: 20080227
  Transmission Date: 20080703
  Serious: Yes (Other)
  Sender: FDA-Public Use
  Company Number: NL-BRISTOL-MYERS SQUIBB COMPANY-14097315

PATIENT
  Age: 61 Year
  Sex: Male

DRUGS (6)
  1. CARBIDOPA + LEVODOPA [Suspect]
     Dosage: CARBIDOPA/LEVODOPA 200/50 MG TABLET
     Route: 048
     Dates: start: 20030728, end: 20071009
  2. SIFROL [Suspect]
     Indication: PARKINSON'S DISEASE
     Dosage: DOSE FORM=TABLET
     Route: 048
     Dates: start: 20020806, end: 20071201
  3. STALEVO 100 [Suspect]
     Indication: PARKINSON'S DISEASE
     Route: 048
     Dates: start: 20050111, end: 20071201
  4. SYMMETREL [Concomitant]
     Dates: start: 20060206
  5. CARBAMAZEPINE [Concomitant]
     Dates: start: 20071227
  6. COMTAN [Concomitant]
     Dates: start: 20070711, end: 20071009

REACTIONS (1)
  - PATHOLOGICAL GAMBLING [None]
